FAERS Safety Report 6087459-1 (Version None)
Quarter: 2009Q1

REPORT INFORMATION
  Report Type: 
  Country: None (occurrence: None)
  Receive Date: 20090223
  Receipt Date: 20090213
  Transmission Date: 20090719
  Serious: Yes (Hospitalization)
  Sender: FDA-Public Use
  Company Number: US-BIOGENIDEC-2008BI030037

PATIENT
  Age: 56 Year
  Sex: Female

DRUGS (1)
  1. AVONEX [Suspect]
     Indication: MULTIPLE SCLEROSIS
     Route: 030
     Dates: start: 20050823

REACTIONS (4)
  - AUTOMATIC BLADDER [None]
  - STRESS URINARY INCONTINENCE [None]
  - URETHRAL INTRINSIC SPHINCTER DEFICIENCY [None]
  - URETHRAL PROLAPSE [None]
